FAERS Safety Report 7939759-5 (Version None)
Quarter: 2011Q4

REPORT INFORMATION
  Report Type: 
  Country: None (occurrence: None)
  Receive Date: 20111125
  Receipt Date: 20111121
  Transmission Date: 20120403
  Serious: Yes (Death)
  Sender: FDA-Public Use
  Company Number: PHHY2011EC102210

PATIENT
  Sex: Male

DRUGS (1)
  1. EXELON [Suspect]
     Indication: DEMENTIA ALZHEIMER'S TYPE
     Dosage: 3.5 MG, 1 CAPSULE QD
     Route: 048

REACTIONS (4)
  - CONSTIPATION [None]
  - ABDOMINAL PAIN [None]
  - LIVER INJURY [None]
  - FLATULENCE [None]
